FAERS Safety Report 12353540 (Version 2)
Quarter: 2016Q2

REPORT INFORMATION
  Report Type: Spontaneous
  Country: US (occurrence: US)
  Receive Date: 20160511
  Receipt Date: 20160607
  Transmission Date: 20160815
  Serious: Yes (Hospitalization)
  Sender: FDA-Public Use
  Company Number: US-HOSPIRA-3279081

PATIENT
  Age: 12 Year
  Sex: Male
  Weight: 50.4 kg

DRUGS (16)
  1. HYDROCORTISONE. [Suspect]
     Active Substance: HYDROCORTISONE
     Indication: PRODUCT USED FOR UNKNOWN INDICATION
     Dosage: PROPHASE (CYCLE= 5DAYS): 7.5-12 MG IT ON DAY 1 (AGE BASE DOSING), FREQ: CYCLICAL
  2. CYTARABINE. [Suspect]
     Active Substance: CYTARABINE
     Indication: PRODUCT USED FOR UNKNOWN INDICATION
     Dosage: 150 MG/M2, COURSE A: 150MG/M2 OVER 1-30 MINUTES Q12 HOURS ON DAYS 4 AND 5 (TOTAL 4 DOSES), FREQ: CYC
     Route: 042
  3. CRIZOTINIB [Suspect]
     Active Substance: CRIZOTINIB
     Indication: PRODUCT USED FOR UNKNOWN INDICATION
     Dosage: 165 MG/M2, COURSE A: CYCLES 1,3 AND 5 (CYCLE= 21 DAYS), 165MG/M2, BID ON DAYS 1-21, FREQ: CYCLICAL
     Route: 048
     Dates: start: 20160402
  4. DOXORUBICIN HYDROCHLORIDE. [Suspect]
     Active Substance: DOXORUBICIN HYDROCHLORIDE
     Indication: PRODUCT USED FOR UNKNOWN INDICATION
     Dosage: 25 MG/M2, COURSE B: 25 MG/M2 OVER 1-15 MIN ON DAYS 4AND 5, FREQ: CYCLICAL
     Route: 042
     Dates: start: 20160405, end: 20160406
  5. METHOTREXATE SODIUM. [Suspect]
     Active Substance: METHOTREXATE SODIUM
     Indication: PRODUCT USED FOR UNKNOWN INDICATION
     Dosage: 3000 MG/M2, COURSE A: CYCLES 1,3 AND 5 (CYCLE= 21 DAYS), 3000 MG/M2, OVER 3 HOURS ON DAY 1, FREQ: CY
     Route: 042
     Dates: start: 20160402, end: 20160402
  6. METHOTREXATE SODIUM. [Suspect]
     Active Substance: METHOTREXATE SODIUM
     Dosage: 3000 MG/M2, COURSE B:CYCLES 2,4 AND 6 (CYCLE= 21 DAYS): 3000 MG/M2,OVER 3 HOURS ON DAY 1, FREQ: CYCL
     Route: 042
     Dates: start: 20160402, end: 20160402
  7. CRIZOTINIB [Suspect]
     Active Substance: CRIZOTINIB
     Dosage: 165 MG/M2, COURSE B:CYCLES 2,4AND 6 (CYCLE= 21 DAYS),165MG/M2,BID ON DAYS 1-2, FREQ: CYCLICAL
     Route: 048
     Dates: start: 20160402
  8. CYCLOPHOSPHAMIDE. [Suspect]
     Active Substance: CYCLOPHOSPHAMIDE
     Dosage: 200 MG/M2, PROPHASE (CYCLE= 5 DAYS): 200 MG/M2,OVER 15-30 MINUTES ON DAYS 1 AND 2, FREQ: CYCLICAL
     Route: 042
     Dates: start: 20160402, end: 20160406
  9. CYTARABINE. [Suspect]
     Active Substance: CYTARABINE
     Dosage: PROPHASE (CYCLE= 5DAYS), 15-24 MG IT ON DAY 1 (AGE BASED DOSING), FREQ: CYCLICAL
  10. DEXAMETHASONE. [Suspect]
     Active Substance: DEXAMETHASONE
     Dosage: 5 MG/M2, PROPHASE (CYCLE= 5 DAYS):5 MG/M2,QD ON DAYS 1-2,BID ON DAYS 3-5, FREQ: CYCLICAL
     Route: 048
     Dates: start: 20160402, end: 20160406
  11. CYCLOPHOSPHAMIDE. [Suspect]
     Active Substance: CYCLOPHOSPHAMIDE
     Indication: PRODUCT USED FOR UNKNOWN INDICATION
     Dosage: 200 MG/M2, COURSE B: CYCLES2,4AND 6 (CYCLE= 21 DAYS): 200 MG/M2,OVER 15-30 MINUTES ON DAYS 1-5, FREQ
     Route: 042
     Dates: start: 20160402, end: 20160406
  12. METHOTREXATE SODIUM. [Suspect]
     Active Substance: METHOTREXATE SODIUM
     Dosage: PROPHASE (CYCLE= 5DAYS): 7.5-12 MG IT ON DAY 1 (AGE BASED DOSING), FREQ: CYCLICAL
     Dates: start: 20160402, end: 20160402
  13. DEXAMETHASONE. [Suspect]
     Active Substance: DEXAMETHASONE
     Dosage: 5 MG/M2, COURSE B: CYCLES 2,4AND 6 (CYCLE= 21 DAYS),5 MG/M2 BID ON DAYS 1-5, FREQ: CYCLICAL
     Route: 048
     Dates: start: 20160402, end: 20160406
  14. ETOPOSIDE. [Suspect]
     Active Substance: ETOPOSIDE
     Indication: PRODUCT USED FOR UNKNOWN INDICATION
     Dosage: 100 MG/M2, COURSE A: 100 MG/M2 OVER 2 HOURS ON DAYS 4 AND 5, FREQ: CYCLICAL
     Route: 042
  15. DEXAMETHASONE. [Suspect]
     Active Substance: DEXAMETHASONE
     Indication: PRODUCT USED FOR UNKNOWN INDICATION
     Dosage: 5 MG/M2, COURSE A: CYCLES 1,3AND 5 (CYCLE= 21 DAYS):5 MG/M2, BID ON DAYS 1-5, FREQ: CYCLICAL
     Route: 048
     Dates: start: 20160402, end: 20160406
  16. IFOSFAMIDE. [Suspect]
     Active Substance: IFOSFAMIDE
     Indication: PRODUCT USED FOR UNKNOWN INDICATION
     Dosage: 800 MG/M2, COURSE A: 800 MG/M2 OVER 60 MIN ON DAYS 1-5, FREQ: CYCLICAL
     Route: 042

REACTIONS (8)
  - Hypotension [Unknown]
  - Respiratory failure [Unknown]
  - Pulmonary oedema [Unknown]
  - Leptotrichia infection [Unknown]
  - Stomatitis [Unknown]
  - Sinus tachycardia [Unknown]
  - Febrile neutropenia [Unknown]
  - Sepsis [Unknown]

NARRATIVE: CASE EVENT DATE: 20160413
